FAERS Safety Report 8576479-0 (Version None)
Quarter: 2012Q3

REPORT INFORMATION
  Report Type: 
  Country: None (occurrence: None)
  Receive Date: 20120807
  Receipt Date: 20120112
  Transmission Date: 20120928
  Serious: Yes (Other)
  Sender: FDA-Public Use
  Company Number: US-ROCHE-1095017

PATIENT
  Sex: Female

DRUGS (8)
  1. XOLAIR [Suspect]
     Indication: RHINITIS ALLERGIC
  2. ALLEGRA-D 12 HOUR [Concomitant]
     Route: 065
  3. SINGULAIR [Concomitant]
     Route: 065
  4. PREDNISONE [Concomitant]
     Dosage: 50MG THEN TAPERING
     Route: 065
  5. XOLAIR [Suspect]
     Indication: STATUS ASTHMATICUS
     Route: 065
  6. FLUTICASONE PROPIONATE [Concomitant]
     Dosage: 50/500 TWICE
  7. NASACORT [Concomitant]
  8. ALBUTEROL [Concomitant]

REACTIONS (8)
  - ILL-DEFINED DISORDER [None]
  - COUGH [None]
  - EYE OEDEMA [None]
  - WHEEZING [None]
  - THROAT IRRITATION [None]
  - RHINORRHOEA [None]
  - EYE PRURITUS [None]
  - LACRIMATION INCREASED [None]
